FAERS Safety Report 16031418 (Version 4)
Quarter: 2019Q4

REPORT INFORMATION
  Report Type: Spontaneous
  Country: US (occurrence: US)
  Receive Date: 20190304
  Receipt Date: 20191014
  Transmission Date: 20200122
  Serious: Yes (Other)
  Sender: FDA-Public Use
  Company Number: US-ASTRAZENECA-2018SF13563

PATIENT
  Age: 636 Month
  Sex: Male

DRUGS (10)
  1. PRILOSEC [Suspect]
     Active Substance: OMEPRAZOLE MAGNESIUM
     Route: 048
     Dates: start: 20120101, end: 20141231
  2. NEXIUM 24HR [Suspect]
     Active Substance: ESOMEPRAZOLE MAGNESIUM
     Route: 048
     Dates: start: 20150101, end: 20161231
  3. LISINOPRIL. [Concomitant]
     Active Substance: LISINOPRIL
  4. NEXIUM [Suspect]
     Active Substance: ESOMEPRAZOLE MAGNESIUM
     Route: 048
     Dates: start: 20150101, end: 20161231
  5. PRILOSEC [Suspect]
     Active Substance: OMEPRAZOLE MAGNESIUM
     Route: 048
     Dates: start: 20120101, end: 20141231
  6. HUMALOG [Concomitant]
     Active Substance: INSULIN LISPRO
  7. FUROSEMIDE. [Concomitant]
     Active Substance: FUROSEMIDE
  8. COREG [Concomitant]
     Active Substance: CARVEDILOL
  9. NORVASC [Concomitant]
     Active Substance: AMLODIPINE BESYLATE
  10. SYNTHROID [Concomitant]
     Active Substance: LEVOTHYROXINE SODIUM

REACTIONS (4)
  - End stage renal disease [Not Recovered/Not Resolved]
  - Renal injury [Unknown]
  - Chronic kidney disease [Not Recovered/Not Resolved]
  - Acute kidney injury [Unknown]

NARRATIVE: CASE EVENT DATE: 201506
